FAERS Safety Report 15751877 (Version 8)
Quarter: 2019Q1

REPORT INFORMATION
  Report Type: Report from Study
  Country: IL (occurrence: IL)
  Receive Date: 20181221
  Receipt Date: 20190131
  Transmission Date: 20190417
  Serious: Yes (Hospitalization)
  Sender: FDA-Public Use
  Company Number: IL-EISAI MEDICAL RESEARCH-EC-2018-049619

PATIENT
  Age: 61 Year
  Sex: Female
  Weight: 39.3 kg

DRUGS (5)
  1. LENVATINIB [Suspect]
     Active Substance: LENVATINIB
     Indication: ENDOMETRIAL CANCER
     Route: 048
     Dates: start: 20181129, end: 20181210
  2. MK-3475 [Suspect]
     Active Substance: PEMBROLIZUMAB
     Route: 041
     Dates: start: 20181218, end: 20181218
  3. LENVATINIB [Suspect]
     Active Substance: LENVATINIB
     Route: 048
     Dates: start: 20181218, end: 20181218
  4. MK-3475 [Suspect]
     Active Substance: PEMBROLIZUMAB
     Indication: ENDOMETRIAL CANCER
     Route: 041
     Dates: start: 20181129, end: 20181129
  5. MK-3475 [Suspect]
     Active Substance: PEMBROLIZUMAB
     Route: 041
     Dates: start: 20190108

REACTIONS (1)
  - Vomiting [Recovered/Resolved]

NARRATIVE: CASE EVENT DATE: 20181218
